FAERS Safety Report 5343318-0 (Version None)
Quarter: 2007Q2

REPORT INFORMATION
  Report Type: 
  Country: None (occurrence: None)
  Receive Date: 20070502
  Receipt Date: 20060611
  Transmission Date: 20071010
  Serious: Yes (Other)
  Sender: FDA-Public Use
  Company Number: PHEH2006US07683

PATIENT
  Sex: Male

DRUGS (1)
  1. LOTREL [Suspect]

REACTIONS (6)
  - ABDOMINAL PAIN [None]
  - INFLUENZA LIKE ILLNESS [None]
  - INSOMNIA [None]
  - JAUNDICE [None]
  - NAUSEA [None]
  - PRURITUS [None]
